FAERS Safety Report 6855879-0 (Version None)
Quarter: 2010Q3

REPORT INFORMATION
  Report Type: 
  Country: None (occurrence: None)
  Receive Date: 20100719
  Receipt Date: 20071212
  Transmission Date: 20110219
  Serious: Yes (Other)
  Sender: FDA-Public Use
  Company Number: US-PFIZER INC-2007090415

PATIENT
  Age: 55 Year
  Sex: Female
  Weight: 86.6 kg

DRUGS (1)
  1. CHANTIX [Suspect]
     Dates: start: 20070916

REACTIONS (8)
  - CRYING [None]
  - DISTURBANCE IN ATTENTION [None]
  - DRUG INEFFECTIVE [None]
  - EATING DISORDER [None]
  - FEELING DRUNK [None]
  - ILL-DEFINED DISORDER [None]
  - NAUSEA [None]
  - NIGHTMARE [None]
